FAERS Safety Report 8418177-X (Version None)
Quarter: 2012Q2

REPORT INFORMATION
  Report Type: 
  Country: None (occurrence: None)
  Receive Date: 20120607
  Receipt Date: 20120530
  Transmission Date: 20120825
  Serious: Yes (Hospitalization)
  Sender: FDA-Public Use
  Company Number: US-CELGENEUS-163-21880-12060094

PATIENT
  Sex: Male
  Weight: 84.3 kg

DRUGS (2)
  1. REVLIMID [Suspect]
     Dosage: 5 MILLIGRAM
     Route: 048
     Dates: start: 20120331, end: 20120521
  2. CLINDAMYCIN [Concomitant]
     Route: 065
     Dates: start: 20120525

REACTIONS (1)
  - PERICARDITIS [None]
